FAERS Safety Report 4304278-4 (Version None)
Quarter: 2004Q1

REPORT INFORMATION
  Report Type: 
  Country: None (occurrence: None)
  Receive Date: 20040224
  Receipt Date: 20040213
  Transmission Date: 20041129
  Serious: Yes (Death)
  Sender: FDA-Public Use
  Company Number: USA-2003-0007661

PATIENT
  Age: 53 Year
  Sex: Male
  Weight: 83 kg

DRUGS (6)
  1. OXYCODONE HDYROCHLORIDE (SIMILAR TO NDA 20-553)(OXYCODONE HYDROCHLORID [Suspect]
  2. HYDROCODONE BITARTRATE [Suspect]
  3. ALPRAZOLAM [Suspect]
  4. CANNABIS (CAQNNABIS) [Suspect]
  5. ACETAMINOPHEN [Suspect]
  6. ETHANOL (ETHANOL) [Suspect]

REACTIONS (17)
  - ACCIDENT AT WORK [None]
  - ASPHYXIA [None]
  - ATHEROSCLEROSIS [None]
  - BRAIN OEDEMA [None]
  - CARDIOMEGALY [None]
  - CONTUSION [None]
  - DRUG LEVEL ABOVE THERAPEUTIC [None]
  - EXCORIATION [None]
  - EXTRADURAL HAEMATOMA [None]
  - HEAD INJURY [None]
  - HEPATIC CONGESTION [None]
  - LACERATION [None]
  - PHARYNGEAL HAEMORRHAGE [None]
  - PULMONARY CONGESTION [None]
  - RENAL DISORDER [None]
  - SOFT TISSUE HAEMORRHAGE [None]
  - SPINAL FRACTURE [None]
